FAERS Safety Report 4509279-9 (Version None)
Quarter: 2004Q4

REPORT INFORMATION
  Report Type: 
  Country: None (occurrence: None)
  Receive Date: 20041123
  Receipt Date: 20041116
  Transmission Date: 20050328
  Serious: Yes (Life-Threatening, Hospitalization)
  Sender: FDA-Public Use
  Company Number: US-MERCK-0411USA02744

PATIENT
  Age: 67 Year
  Sex: Female

DRUGS (11)
  1. VIOXX [Suspect]
     Route: 048
     Dates: start: 20040101, end: 20040902
  2. TOPROL-XL [Concomitant]
     Route: 065
  3. PLAVIX [Concomitant]
     Route: 065
  4. ATACAND [Concomitant]
     Route: 065
  5. SYNTHROID [Concomitant]
     Route: 065
  6. TRICOR [Concomitant]
     Route: 065
  7. DITROPAN [Concomitant]
     Route: 065
  8. REMINYL [Concomitant]
     Route: 065
  9. CRESTOR [Concomitant]
     Route: 065
  10. SINGULAIR [Concomitant]
     Route: 048
  11. GLUCOVANCE [Concomitant]
     Route: 065

REACTIONS (2)
  - ARTERIAL OCCLUSIVE DISEASE [None]
  - CEREBROVASCULAR ACCIDENT [None]
